FAERS Safety Report 7790769-0 (Version None)
Quarter: 2011Q3

REPORT INFORMATION
  Report Type: 
  Country: None (occurrence: None)
  Receive Date: 20110930
  Receipt Date: 20001127
  Transmission Date: 20111222
  Serious: Yes (Other)
  Sender: FDA-Public Use
  Company Number: PHEH2000US10520

PATIENT
  Age: 65 Year
  Sex: Male

DRUGS (2)
  1. COREG [Concomitant]
     Dosage: UNK, UNK
  2. LAMISIL [Suspect]
     Dosage: 250 MG, QD
     Route: 048
     Dates: start: 20000928

REACTIONS (4)
  - ANAPHYLACTIC REACTION [None]
  - DYSPNOEA [None]
  - ABDOMINAL PAIN [None]
  - FEELING JITTERY [None]
